FAERS Safety Report 9165119 (Version 1)
Quarter: 2013Q1

REPORT INFORMATION
  Report Type: Spontaneous
  Country: CA (occurrence: US)
  Receive Date: 20130315
  Receipt Date: 20130315
  Transmission Date: 20140127
  Serious: Yes (Other)
  Sender: FDA-Public Use
  Company Number: CA-JNJFOC-20130307542

PATIENT
  Age: 65 Year
  Sex: Female
  Weight: 99.79 kg

DRUGS (3)
  1. TYLENOL COLD MULTI-SYMPTOM [Suspect]
     Indication: NASOPHARYNGITIS
     Route: 048
     Dates: start: 20130217, end: 20130219
  2. PANTOLOC [Concomitant]
     Indication: GASTROOESOPHAGEAL REFLUX DISEASE
     Dosage: SINCE 10 YEARS
     Route: 065
     Dates: start: 20030219
  3. REACTINE [Concomitant]
     Indication: MULTIPLE ALLERGIES
     Dosage: SINCE 20 YEARS
     Route: 065
     Dates: start: 19930219

REACTIONS (2)
  - Presyncope [Recovered/Resolved]
  - Headache [Recovered/Resolved]
